FAERS Safety Report 9914139 (Version 2)
Quarter: 2014Q1

REPORT INFORMATION
  Report Type: Spontaneous
  Country: NL (occurrence: NL)
  Receive Date: 20140220
  Receipt Date: 20140313
  Transmission Date: 20141002
  Serious: Yes (Hospitalization, Congenital Anomaly)
  Sender: FDA-Public Use
  Company Number: NL-PFIZER INC-2014045751

PATIENT
  Sex: Male
  Weight: 3.29 kg

DRUGS (3)
  1. SERTRALINE [Suspect]
     Indication: DEPRESSION
     Dosage: 50 MG, 1X/DAY
     Route: 064
     Dates: start: 20130626
  2. ESCITALOPRAM OXALATE [Suspect]
     Indication: DEPRESSION
     Dosage: 10 MG, 1X/DAY
     Route: 064
     Dates: end: 20130626
  3. FOLIC ACID [Concomitant]
     Dosage: UNK
     Route: 064
     Dates: start: 201303

REACTIONS (3)
  - Foetal exposure during pregnancy [Unknown]
  - Coarctation of the aorta [Recovering/Resolving]
  - Respiratory failure [Unknown]
